FAERS Safety Report 7372564-X (Version None)
Quarter: 2011Q1

REPORT INFORMATION
  Report Type: 
  Country: None (occurrence: None)
  Receive Date: 20110324
  Receipt Date: 20110315
  Transmission Date: 20110831
  Serious: Yes (Other)
  Sender: FDA-Public Use
  Company Number: JP-BRISTOL-MYERS SQUIBB COMPANY-15202310

PATIENT
  Age: 38 Year
  Sex: Female

DRUGS (2)
  1. ABILIFY [Suspect]
     Indication: SCHIZOPHRENIA
     Route: 048
     Dates: start: 20060726, end: 20110301
  2. MENTAX [Concomitant]
     Dosage: CREAM

REACTIONS (3)
  - PREGNANCY [None]
  - CAESAREAN SECTION [None]
  - LIVE BIRTH [None]
